FAERS Safety Report 6563967-1 (Version None)
Quarter: 2010Q1

REPORT INFORMATION
  Report Type: 
  Country: None (occurrence: None)
  Receive Date: 20100131
  Receipt Date: 20100122
  Transmission Date: 20100710
  Serious: Yes (Hospitalization)
  Sender: FDA-Public Use
  Company Number: US-JNJFOC-20100110519

PATIENT
  Sex: Female
  Weight: 68.04 kg

DRUGS (4)
  1. FENTANYL CITRATE [Suspect]
     Indication: BACK PAIN
     Route: 062
  2. FENTANYL CITRATE [Suspect]
     Route: 062
  3. FENTANYL CITRATE [Suspect]
     Route: 062
  4. OXYCODONE [Suspect]
     Indication: BACK PAIN
     Route: 065

REACTIONS (8)
  - CONVULSION [None]
  - DRUG INEFFECTIVE [None]
  - EATING DISORDER [None]
  - FALL [None]
  - PAIN [None]
  - PELVIC FRACTURE [None]
  - THERAPEUTIC AGENT TOXICITY [None]
  - WRONG TECHNIQUE IN DRUG USAGE PROCESS [None]
